FAERS Safety Report 18948921 (Version 1)
Quarter: 2021Q1

REPORT INFORMATION
  Report Type: Spontaneous
  Country: CA (occurrence: CA)
  Receive Date: 20210227
  Receipt Date: 20210227
  Transmission Date: 20210420
  Serious: Yes (Other)
  Sender: FDA-Public Use
  Company Number: NVSC2021CA038061

PATIENT
  Age: 72 Year
  Sex: Male

DRUGS (2)
  1. METHOTREXATE. [Suspect]
     Active Substance: METHOTREXATE
     Indication: BLOOD PRESSURE MEASUREMENT
     Dosage: UNK
     Route: 065
  2. ERELZI [Suspect]
     Active Substance: ETANERCEPT-SZZS
     Indication: PSORIATIC ARTHROPATHY
     Dosage: 50 MG, QW (1 EVERY 1 WEEK)
     Route: 058

REACTIONS (6)
  - Liver function test abnormal [Unknown]
  - Pain [Unknown]
  - Pneumonia [Unknown]
  - Grip strength decreased [Unknown]
  - Malaise [Unknown]
  - General physical health deterioration [Unknown]
